FAERS Safety Report 7884563-X (Version None)
Quarter: 2011Q4

REPORT INFORMATION
  Report Type: 
  Country: None (occurrence: None)
  Receive Date: 20111102
  Receipt Date: 20111025
  Transmission Date: 20120403
  Serious: Yes (Hospitalization)
  Sender: FDA-Public Use
  Company Number: JP-BRISTOL-MYERS SQUIBB COMPANY-15875115

PATIENT
  Age: 85 Year
  Sex: Female

DRUGS (10)
  1. ASPIRIN [Concomitant]
     Route: 048
  2. TANATRIL [Concomitant]
     Route: 048
  3. SLOW-K [Concomitant]
     Route: 048
     Dates: start: 20101107, end: 20101111
  4. AVAPRO [Suspect]
     Indication: HYPERTENSION
     Route: 048
     Dates: start: 20100414, end: 20101101
  5. ADALAT [Concomitant]
     Dosage: ALSO 60MG/DAY
     Route: 048
     Dates: end: 20101018
  6. LANSOPRAZOLE [Concomitant]
  7. EPLERENONE [Concomitant]
     Dosage: 100MG:UNK-15JUN2010 50MG:UNK-16JUN2010
     Dates: end: 20100601
  8. NATEGLINIDE [Concomitant]
     Route: 048
     Dates: end: 20100615
  9. EBRANTIL [Concomitant]
     Route: 048
  10. LIPIDIL [Concomitant]
     Route: 048

REACTIONS (3)
  - HYPERTENSION [None]
  - HYPOKALAEMIA [None]
  - NEPHROTIC SYNDROME [None]
